FAERS Safety Report 5039471-9 (Version None)
Quarter: 2006Q2

REPORT INFORMATION
  Report Type: 
  Country: None (occurrence: None)
  Receive Date: 20060629
  Receipt Date: 20060531
  Transmission Date: 20061013
  Serious: Yes (Other)
  Sender: FDA-Public Use
  Company Number: ZA-BRISTOL-MYERS SQUIBB COMPANY-13397815

PATIENT
  Age: 11 Year
  Sex: Female
  Weight: 27 kg

DRUGS (6)
  1. ATAZANAVIR [Suspect]
     Indication: HIV INFECTION
     Dosage: ATAZANAVIR TEMPORARILY STOPPED ON 15-MAY-2006 AND RESTARTED ON 22-MAY-2006.
     Route: 048
     Dates: start: 20060503
  2. STAVUDINE [Suspect]
     Indication: HIV INFECTION
     Dosage: STAVUDINE TEMPORARILY STOPPED ON 15-MAY-2006 AND RESTARTED ON 22-MAY-2006.
     Route: 048
     Dates: start: 20060503
  3. LAMIVUDINE [Suspect]
     Indication: HIV INFECTION
     Dosage: LAMIVUDINE TEMPORARILY STOPPED ON 15-MAY-2006 AND RESTARTED ON 22-MAY-2006.
     Route: 048
     Dates: start: 20060503
  4. RITONAVIR [Suspect]
     Indication: HIV INFECTION
     Dosage: RITONAVIR TEMPORARILY STOPPED ON 15-MAY-2006 AND RESTARTED ON 22-MAY-2006.
     Route: 048
     Dates: start: 20060503
  5. BACTRIM [Concomitant]
     Dates: start: 20030101
  6. MULTI-VITAMIN [Concomitant]

REACTIONS (3)
  - BLOOD BILIRUBIN UNCONJUGATED INCREASED [None]
  - ELECTROCARDIOGRAM QT CORRECTED INTERVAL PROLONGED [None]
  - HYPERBILIRUBINAEMIA [None]
